FAERS Safety Report 6219787-0 (Version None)
Quarter: 2009Q2

REPORT INFORMATION
  Report Type: 
  Country: None (occurrence: None)
  Receive Date: 20090609
  Receipt Date: 20090602
  Transmission Date: 20091009
  Serious: Yes (Hospitalization, Other)
  Sender: FDA-Public Use
  Company Number: B0576936A

PATIENT
  Sex: Female

DRUGS (8)
  1. PAROXETINE HCL [Suspect]
     Indication: ANXIETY
     Dosage: 40MG PER DAY
     Route: 048
  2. PREVISCAN [Suspect]
     Indication: PULMONARY EMBOLISM
     Dosage: 20MG PER DAY
     Route: 048
     Dates: start: 20070801, end: 20070907
  3. LEVOTHYROX [Suspect]
     Indication: HYPOTHYROIDISM
     Dosage: 75MCG PER DAY
     Route: 048
  4. EQUANIL [Concomitant]
     Indication: ANXIETY
     Dosage: 400MG PER DAY
     Route: 048
  5. MEMANTINE [Concomitant]
     Indication: DEMENTIA ALZHEIMER'S TYPE
     Dosage: 20MG PER DAY
     Route: 048
  6. RISPERDAL [Concomitant]
     Indication: PSYCHOTIC DISORDER
     Dosage: 2UNIT PER DAY
     Route: 048
  7. XANAX [Concomitant]
     Indication: ANXIETY
     Dosage: 2UNIT PER DAY
     Route: 048
  8. EXELON [Concomitant]
     Dosage: 2UNIT PER DAY
     Route: 048

REACTIONS (4)
  - AGITATION [None]
  - CONFUSIONAL STATE [None]
  - DRUG INTERACTION [None]
  - INTERNATIONAL NORMALISED RATIO INCREASED [None]
